FAERS Safety Report 4540481-6 (Version None)
Quarter: 2004Q4

REPORT INFORMATION
  Report Type: 
  Country: None (occurrence: None)
  Receive Date: 20041229
  Receipt Date: 20041222
  Transmission Date: 20050328
  Serious: Yes (Other)
  Sender: FDA-Public Use
  Company Number: PHBS2004JP17337

PATIENT
  Age: 26 Year
  Sex: Female

DRUGS (3)
  1. ADRENAL HORMONE PREPARATIONS [Concomitant]
     Indication: SYSTEMIC LUPUS ERYTHEMATOSUS
     Dosage: 60 MG/DAY
     Route: 048
  2. CYCLOSPORINE [Suspect]
     Indication: LUPUS NEPHRITIS
     Dosage: 100 MG/D
     Route: 065
     Dates: start: 20040305, end: 20040101
  3. CYCLOSPORINE [Suspect]
     Dosage: 150 MG/D
     Route: 065
     Dates: start: 20040101, end: 20040101

REACTIONS (1)
  - CARDIAC FAILURE [None]
